FAERS Safety Report 10550090 (Version 1)
Quarter: 2014Q4

REPORT INFORMATION
  Report Type: Spontaneous
  Country: VE (occurrence: VE)
  Receive Date: 20141028
  Receipt Date: 20141028
  Transmission Date: 20150529
  Serious: Yes (Hospitalization)
  Sender: FDA-Public Use
  Company Number: PHHY2014VE140603

PATIENT
  Sex: Female

DRUGS (4)
  1. STALEVO [Suspect]
     Active Substance: CARBIDOPA\ENTACAPONE\LEVODOPA
     Indication: PARKINSON^S DISEASE
     Dosage: 550 MG, QD
     Route: 048
     Dates: start: 2000
  2. STALEVO [Suspect]
     Active Substance: CARBIDOPA\ENTACAPONE\LEVODOPA
     Dosage: 275 MG, QD
     Route: 048
     Dates: start: 2000
  3. STALEVO [Suspect]
     Active Substance: CARBIDOPA\ENTACAPONE\LEVODOPA
     Dosage: 550 MG, QD
     Route: 048
  4. MIRAPEX [Concomitant]
     Active Substance: PRAMIPEXOLE DIHYDROCHLORIDE
     Indication: PARKINSON^S DISEASE
     Dosage: 1 DF, QD
     Route: 065

REACTIONS (5)
  - Aspiration bronchial [Recovered/Resolved]
  - Lung infection [Recovered/Resolved]
  - Muscle rigidity [Recovered/Resolved]
  - Hypokinesia [Recovered/Resolved]
  - Withdrawal syndrome [Recovered/Resolved]
